FAERS Safety Report 4324331-9 (Version None)
Quarter: 2004Q1

REPORT INFORMATION
  Report Type: 
  Country: None (occurrence: None)
  Receive Date: 20040326
  Receipt Date: 20040129
  Transmission Date: 20041129
  Serious: No
  Sender: FDA-Public Use
  Company Number: US-GLAXOSMITHKLINE-A0495743A

PATIENT
  Age: 71 Year
  Sex: Female

DRUGS (7)
  1. ADVAIR DISKUS 100/50 [Suspect]
     Dosage: 1PUFF TWICE PER DAY
     Route: 055
  2. PROVENTIL [Concomitant]
  3. AZMACORT MDI [Concomitant]
  4. THEO-24 [Concomitant]
  5. VITAMIN E [Concomitant]
  6. MULTI-VITAMIN [Concomitant]
  7. ASPIRIN [Concomitant]

REACTIONS (2)
  - PHARMACEUTICAL PRODUCT COMPLAINT [None]
  - WHEEZING [None]
